FAERS Safety Report 6614136-8 (Version None)
Quarter: 2010Q1

REPORT INFORMATION
  Report Type: 
  Country: None (occurrence: None)
  Receive Date: 20100303
  Receipt Date: 20100303
  Transmission Date: 20100710
  Serious: No
  Sender: FDA-Public Use
  Company Number: None

PATIENT
  Age: 63 Year
  Sex: Female
  Weight: 96.2 kg

DRUGS (2)
  1. HEPARIN [Suspect]
     Dosage: 18 UNITS/KG/HR INFUSION IV
     Route: 042
  2. WARFARIN SODIUM [Suspect]
     Dosage: 3 MG QHS PO
     Route: 048

REACTIONS (2)
  - HEPARIN-INDUCED THROMBOCYTOPENIA [None]
  - SKIN NECROSIS [None]
